FAERS Safety Report 22749813 (Version 6)
Quarter: 2023Q4

REPORT INFORMATION
  Report Type: Spontaneous
  Country: US (occurrence: US)
  Receive Date: 20230726
  Receipt Date: 20231222
  Transmission Date: 20240110
  Serious: No
  Sender: FDA-Public Use
  Company Number: US-GLAXOSMITHKLINE-US2023AMR100722

PATIENT
  Age: 78 Year
  Sex: Female
  Weight: 61.678 kg

DRUGS (6)
  1. ZEJULA [Suspect]
     Active Substance: NIRAPARIB
     Indication: Ovarian cancer
     Dosage: 200 MG, QD
     Route: 048
     Dates: start: 20230525, end: 202309
  2. ZEJULA [Suspect]
     Active Substance: NIRAPARIB
     Dosage: 1 DF, QD
  3. ZEJULA [Suspect]
     Active Substance: NIRAPARIB
     Dosage: 100 MG, QD
  4. ZEJULA [Suspect]
     Active Substance: NIRAPARIB
     Dosage: 100 MG, QD
     Route: 048
  5. ZEJULA [Suspect]
     Active Substance: NIRAPARIB
     Indication: Ovarian cancer
     Dosage: 100 MG, QD
     Dates: start: 20230929
  6. ZEJULA [Suspect]
     Active Substance: NIRAPARIB
     Dosage: 100 MG, QD
     Route: 048
     Dates: start: 202310

REACTIONS (22)
  - Dyspnoea [Unknown]
  - Headache [Unknown]
  - Blood pressure increased [Unknown]
  - Hypoaesthesia [Unknown]
  - Malaise [Unknown]
  - Illness [Unknown]
  - Diarrhoea [Unknown]
  - Dry mouth [Unknown]
  - Taste disorder [Unknown]
  - Nasopharyngitis [Unknown]
  - Appetite disorder [Unknown]
  - Ageusia [Unknown]
  - Nausea [Unknown]
  - Eye pain [Unknown]
  - Ocular hyperaemia [Unknown]
  - Asthenopia [Unknown]
  - Ear infection [Unknown]
  - Stress [Unknown]
  - Pain of skin [Unknown]
  - Asthenia [Unknown]
  - Pain in extremity [Unknown]
  - Product dose omission issue [Unknown]

NARRATIVE: CASE EVENT DATE: 20230720
